FAERS Safety Report 13165619 (Version 2)
Quarter: 2017Q2

REPORT INFORMATION
  Report Type: Spontaneous
  Country: US (occurrence: US)
  Receive Date: 20170131
  Receipt Date: 20170615
  Transmission Date: 20170830
  Serious: Yes (Hospitalization)
  Sender: FDA-Public Use
  Company Number: US-ASTRAZENECA-2017SE08180

PATIENT
  Age: 8779 Day
  Sex: Male
  Weight: 120.7 kg

DRUGS (6)
  1. ZOFRAN [Concomitant]
     Active Substance: ONDANSETRON HYDROCHLORIDE
     Route: 042
  2. PROTONIX [Concomitant]
     Active Substance: PANTOPRAZOLE SODIUM
     Route: 042
  3. VYVANSE [Concomitant]
     Active Substance: LISDEXAMFETAMINE DIMESYLATE
  4. ALLOPURINOL. [Concomitant]
     Active Substance: ALLOPURINOL
     Indication: GOUT
     Route: 048
  5. ZURAMPIC [Suspect]
     Active Substance: LESINURAD
     Indication: HYPERURICAEMIA
     Route: 048
  6. ZURAMPIC [Suspect]
     Active Substance: LESINURAD
     Indication: GOUT
     Route: 048

REACTIONS (9)
  - Vomiting [Recovered/Resolved]
  - Sinus bradycardia [Recovered/Resolved]
  - Dehydration [Recovered/Resolved]
  - Product use issue [Unknown]
  - Hypophagia [Unknown]
  - Acute kidney injury [Recovered/Resolved]
  - Creatinine renal clearance abnormal [Recovered/Resolved]
  - Abdominal pain upper [Unknown]
  - Perinephritis [Unknown]

NARRATIVE: CASE EVENT DATE: 20161129
